FAERS Safety Report 8474371-3 (Version None)
Quarter: 2012Q2

REPORT INFORMATION
  Report Type: 
  Country: None (occurrence: None)
  Receive Date: 20120628
  Receipt Date: 20120206
  Transmission Date: 20120825
  Serious: Yes (Other)
  Sender: FDA-Public Use
  Company Number: US-MYLANLABS-2011S1025547

PATIENT
  Age: 25 Year
  Sex: Male
  Weight: 83.01 kg

DRUGS (12)
  1. CLOZAPINE [Suspect]
     Dates: start: 20111201
  2. HALOPERIDOL [Concomitant]
  3. SERTRALINE HYDROCHLORIDE [Concomitant]
  4. CLOZAPINE [Suspect]
     Indication: SCHIZOPHRENIA
     Dates: start: 20111026, end: 20111201
  5. CYMBALTA [Concomitant]
  6. CLOZAPINE [Suspect]
     Dates: start: 20111201
  7. TRAMADOL HCL [Concomitant]
  8. TRAZODONE HCL [Concomitant]
  9. PROPRANOLOL [Concomitant]
  10. METFORMIN HCL [Concomitant]
  11. BENZTROPINE MESYLATE [Concomitant]
  12. TRILEPTAL [Concomitant]

REACTIONS (1)
  - GRANULOCYTOPENIA [None]
